FAERS Safety Report 6685454-2 (Version None)
Quarter: 2010Q2

REPORT INFORMATION
  Report Type: 
  Country: None (occurrence: None)
  Receive Date: 20100419
  Receipt Date: 20100406
  Transmission Date: 20101027
  Serious: Yes (Hospitalization, Other)
  Sender: FDA-Public Use
  Company Number: US-BIOGENIDEC-2010BI011352

PATIENT
  Age: 36 Year
  Sex: Female
  Weight: 61 kg

DRUGS (22)
  1. TYSABRI [Suspect]
     Indication: MULTIPLE SCLEROSIS
     Route: 042
     Dates: start: 20090617, end: 20100127
  2. CYMBALTA [Concomitant]
     Indication: DEPRESSION
     Route: 048
     Dates: start: 20070529
  3. CYMBALTA [Concomitant]
  4. ADDERALL 30 [Concomitant]
     Indication: ANXIETY
     Route: 048
     Dates: start: 20071016
  5. FLAXSEED [Concomitant]
     Indication: SUPPLEMENTATION THERAPY
     Route: 048
  6. VITAMIN D [Concomitant]
     Indication: SUPPLEMENTATION THERAPY
     Route: 048
     Dates: start: 20091111
  7. VICODIN [Concomitant]
     Indication: PAIN
     Dates: start: 20091111
  8. PREDNISONE [Concomitant]
     Indication: MULTIPLE SCLEROSIS RELAPSE
     Dates: start: 20100107, end: 20100127
  9. PREDNISONE [Concomitant]
  10. PROVIGIL [Concomitant]
     Indication: FATIGUE
     Route: 048
     Dates: start: 20091111
  11. ZOFRAN [Concomitant]
     Indication: DRUG USE FOR UNKNOWN INDICATION
  12. PEPCID [Concomitant]
  13. TYLENOL-500 [Concomitant]
     Indication: DRUG USE FOR UNKNOWN INDICATION
  14. STOOL SOFTENER [Concomitant]
     Indication: DRUG USE FOR UNKNOWN INDICATION
  15. CODEINE SULFATE [Concomitant]
     Indication: DRUG USE FOR UNKNOWN INDICATION
  16. FLUCONAZOLE [Concomitant]
     Indication: DRUG USE FOR UNKNOWN INDICATION
  17. FOSPHENYTOIN [Concomitant]
     Indication: DRUG USE FOR UNKNOWN INDICATION
  18. POTASSIUM [Concomitant]
     Indication: SUPPLEMENTATION THERAPY
  19. ELECTROLYTES [Concomitant]
     Indication: SUPPLEMENTATION THERAPY
  20. ALBUTEROL [Concomitant]
     Indication: DRUG USE FOR UNKNOWN INDICATION
  21. INSULIN [Concomitant]
     Indication: DRUG USE FOR UNKNOWN INDICATION
  22. SOLU-MEDROL [Concomitant]
     Indication: DRUG USE FOR UNKNOWN INDICATION

REACTIONS (1)
  - ASTROCYTOMA [None]
